FAERS Safety Report 6302344-5 (Version None)
Quarter: 2009Q3

REPORT INFORMATION
  Report Type: 
  Country: None (occurrence: None)
  Receive Date: 20090810
  Receipt Date: 20070606
  Transmission Date: 20100115
  Serious: Yes (Other)
  Sender: FDA-Public Use
  Company Number: US-ASTRAZENECA-2006UW24582

PATIENT
  Age: 14612 Day
  Sex: Female
  Weight: 107.5 kg

DRUGS (11)
  1. SEROQUEL [Suspect]
     Indication: BIPOLAR DISORDER
     Dosage: 25 TO 300 MG, FLUCTUATING, INTERMITTENT
     Route: 048
     Dates: start: 20040416
  2. SEROQUEL [Suspect]
     Route: 048
  3. ZYPREXA [Suspect]
     Route: 048
     Dates: start: 19990804
  4. ABILIFY [Concomitant]
  5. GEODON [Concomitant]
  6. HALDOL [Concomitant]
  7. RISPERDAL [Concomitant]
  8. THORAZINE [Concomitant]
  9. PROZAC [Concomitant]
     Route: 048
     Dates: start: 20010918
  10. SYNTHROID [Concomitant]
     Route: 048
     Dates: start: 20040427
  11. DEPAKOTE E [Concomitant]
     Route: 048
     Dates: start: 20010918

REACTIONS (5)
  - DIABETES MELLITUS [None]
  - DRUG EXPOSURE DURING PREGNANCY [None]
  - GESTATIONAL DIABETES [None]
  - HYPOGLYCAEMIA [None]
  - TYPE 2 DIABETES MELLITUS [None]
